FAERS Safety Report 6763564 (Version 5)
Quarter: 2012Q4

REPORT INFORMATION
  Report Type: 
  Country: CA (occurrence: CA)
  Receive Date: 20080919
  Receipt Date: 20121102
  Transmission Date: 20130627
  Serious: Yes (Death, Hospitalization, Disabling, Other)
  Sender: FDA-Public Use
  Company Number: PHMT2006CA00943

PATIENT
  Age: 51 None
  Sex: Female

DRUGS (4)
  1. SANDOSTATIN LAR [Suspect]
     Indication: NEUROENDOCRINE TUMOUR
     Dosage: 60 mg, QMO
     Route: 030
     Dates: start: 20050815, end: 20060414
  2. SANDOSTATIN LAR [Suspect]
     Dosage: 60 mg, QMO
     Route: 030
     Dates: start: 20080612
  3. SANDOSTATIN LAR [Suspect]
     Dosage: 40 mg, every 4 weeks
     Route: 030
  4. SANDOSTATIN LAR [Suspect]
     Dosage: 60 mg, QMO
     Route: 030
     Dates: end: 20090810

REACTIONS (31)
  - Death [Fatal]
  - Obstruction [Recovering/Resolving]
  - Blood potassium decreased [Unknown]
  - Electrolyte imbalance [Unknown]
  - Weight decreased [Unknown]
  - Clostridium difficile infection [Unknown]
  - Respiratory disorder [Unknown]
  - Blood pressure decreased [Unknown]
  - Blood sodium decreased [Unknown]
  - Osteoporosis [Recovering/Resolving]
  - Malnutrition [Unknown]
  - Bone density decreased [Recovering/Resolving]
  - Vitamin D deficiency [Recovering/Resolving]
  - Fracture [Recovering/Resolving]
  - Blood pressure diastolic decreased [Unknown]
  - Dehydration [Unknown]
  - Renal failure [Unknown]
  - Asthenia [Unknown]
  - Diarrhoea [Unknown]
  - Fatigue [Unknown]
  - Palpitations [Unknown]
  - Cachexia [Unknown]
  - Calcium ionised decreased [Recovering/Resolving]
  - Weight increased [Unknown]
  - Fall [Recovering/Resolving]
  - Scar [Unknown]
  - Cyanosis [Unknown]
  - Nausea [Unknown]
  - Blood glucose abnormal [Unknown]
  - Alopecia [Not Recovered/Not Resolved]
  - Dyspnoea [Unknown]
